FAERS Safety Report 9904228 (Version 1)
Quarter: 2014Q1

REPORT INFORMATION
  Report Type: Report from Study
  Country: FR (occurrence: FR)
  Receive Date: 20140218
  Receipt Date: 20140218
  Transmission Date: 20141002
  Serious: Yes (Other)
  Sender: FDA-Public Use
  Company Number: FR-ROCHE-1347932

PATIENT
  Age: 63 Year
  Sex: Female

DRUGS (3)
  1. BEVACIZUMAB [Suspect]
     Indication: OVARIAN CANCER
     Dosage: 12/DEC/2013 ,LAST DOSE ADMINISTRATION PRIOR TO SAE
     Route: 042
     Dates: start: 20130131
  2. CARBOPLATIN [Suspect]
     Indication: OVARIAN CANCER
     Dosage: AUCS, 06/JUN/2013, LAST DOSE ADMIMNISTERED.
     Route: 042
     Dates: start: 20130131
  3. PACLITAXEL [Suspect]
     Indication: OVARIAN CANCER
     Route: 042
     Dates: start: 20130131

REACTIONS (1)
  - Pericardial effusion [Recovered/Resolved]
